FAERS Safety Report 7962660-8 (Version None)
Quarter: 2011Q4

REPORT INFORMATION
  Report Type: 
  Country: None (occurrence: None)
  Receive Date: 20111207
  Receipt Date: 20111201
  Transmission Date: 20120403
  Serious: Yes (Other)
  Sender: FDA-Public Use
  Company Number: JP-BRACCO-005030

PATIENT
  Age: 82 Year
  Sex: Male

DRUGS (4)
  1. PROHANCE [Suspect]
     Indication: RACHIOTOMY
     Dosage: TWO MRIS IN 2009
     Route: 042
  2. PROHANCE [Suspect]
     Indication: SPINAL FUSION SURGERY
     Dosage: TWO MRIS IN 2009
     Route: 042
  3. PROHANCE [Suspect]
     Indication: NUCLEAR MAGNETIC RESONANCE IMAGING
     Dosage: TWO MRIS IN 2009
     Route: 042
  4. ANTIINFLAMMATORY/ANTIRHEUMATIC PRODUCTS [Concomitant]
     Indication: RHEUMATOID ARTHRITIS
     Route: 065

REACTIONS (1)
  - NEPHROGENIC SYSTEMIC FIBROSIS [None]
